FAERS Safety Report 9073001 (Version 1)
Quarter: 2013Q1

REPORT INFORMATION
  Report Type: Report from Study
  Country: US (occurrence: US)
  Receive Date: 20130129
  Receipt Date: 20130129
  Transmission Date: 20140127
  Serious: Yes (Hospitalization)
  Sender: FDA-Public Use
  Company Number: US-JNJFOC-20130106048

PATIENT
  Age: 80 Year
  Sex: Male
  Weight: 106.6 kg

DRUGS (1)
  1. USTEKINUMAB [Suspect]
     Indication: PSORIASIS
     Route: 058
     Dates: start: 200912

REACTIONS (2)
  - Cholelithiasis [Recovered/Resolved]
  - Rectal haemorrhage [Recovered/Resolved]
